FAERS Safety Report 21650884 (Version 1)
Quarter: 2022Q4

REPORT INFORMATION
  Report Type: Spontaneous
  Country: US (occurrence: US)
  Receive Date: 20221128
  Receipt Date: 20221128
  Transmission Date: 20230113
  Serious: No
  Sender: FDA-Public Use
  Company Number: US-PFIZER INC-2020294844

PATIENT
  Age: 57 Year
  Sex: Female

DRUGS (2)
  1. EUCRISA [Suspect]
     Active Substance: CRISABOROLE
     Indication: Eczema
     Dosage: 1 APPLICATION TO AREA TWICE A DAY
  2. EUCRISA [Suspect]
     Active Substance: CRISABOROLE
     Indication: Dermatitis

REACTIONS (2)
  - Skin discomfort [Unknown]
  - Sensitivity to weather change [Unknown]
